FAERS Safety Report 8139239-0 (Version None)
Quarter: 2012Q1

REPORT INFORMATION
  Report Type: 
  Country: None (occurrence: None)
  Receive Date: 20120215
  Receipt Date: 20120209
  Transmission Date: 20120608
  Serious: Yes (Hospitalization)
  Sender: FDA-Public Use
  Company Number: US-GILEAD-2012-0048893

PATIENT
  Sex: Male

DRUGS (5)
  1. ADCIRCA [Concomitant]
  2. TYVASO [Concomitant]
  3. LETAIRIS [Suspect]
     Indication: SLEEP APNOEA SYNDROME
  4. LETAIRIS [Suspect]
     Indication: PULMONARY HYPERTENSION
     Dosage: 5 MG, UNK
     Route: 048
     Dates: start: 20080415
  5. LETAIRIS [Suspect]
     Indication: UNEVALUABLE EVENT

REACTIONS (5)
  - UNEVALUABLE EVENT [None]
  - PNEUMONIA [None]
  - DYSPNOEA [None]
  - CHOKING [None]
  - INCREASED UPPER AIRWAY SECRETION [None]
